FAERS Safety Report 15771743 (Version 2)
Quarter: 2019Q1

REPORT INFORMATION
  Report Type: Spontaneous
  Country: US (occurrence: US)
  Receive Date: 20181228
  Receipt Date: 20190124
  Transmission Date: 20190417
  Serious: No
  Sender: FDA-Public Use
  Company Number: US-STRONGBRIDGE BIOPHARMA-2018-STR-000417

PATIENT
  Age: 41 Year
  Sex: Male

DRUGS (1)
  1. KEVEYIS [Suspect]
     Active Substance: DICHLORPHENAMIDE
     Indication: FAMILIAL PERIODIC PARALYSIS
     Dosage: 25 MG, BID
     Route: 048
     Dates: start: 20180907

REACTIONS (2)
  - Prescribed underdose [Not Recovered/Not Resolved]
  - Vein collapse [Not Recovered/Not Resolved]

NARRATIVE: CASE EVENT DATE: 20180907
